FAERS Safety Report 24026593 (Version 3)
Quarter: 2024Q3

REPORT INFORMATION
  Report Type: Spontaneous
  Country: TN (occurrence: TN)
  Receive Date: 20240628
  Receipt Date: 20240710
  Transmission Date: 20241017
  Serious: No
  Sender: ROCHE
  Company Number: TN-ROCHE-3514374

PATIENT
  Age: 60 Year
  Sex: Male

DRUGS (2)
  1. ALECENSA [Suspect]
     Active Substance: ALECTINIB HYDROCHLORIDE
     Indication: Product used for unknown indication
     Dosage: REDUCED DOSE OF 3 TABLETS X 3 PER DAY.
     Route: 048
     Dates: start: 20240115
  2. ALECENSA [Suspect]
     Active Substance: ALECTINIB HYDROCHLORIDE
     Route: 048

REACTIONS (4)
  - Hyperbilirubinaemia [Unknown]
  - Ocular icterus [Unknown]
  - Asthenia [Unknown]
  - Oedema [Unknown]

NARRATIVE: CASE EVENT DATE: 20240219
